FAERS Safety Report 12906351 (Version 6)
Quarter: 2017Q1

REPORT INFORMATION
  Report Type: Spontaneous
  Country: US (occurrence: US)
  Receive Date: 20161103
  Receipt Date: 20170301
  Transmission Date: 20170428
  Serious: No
  Sender: FDA-Public Use
  Company Number: US-PFIZER INC-2016507624

PATIENT
  Age: 66 Year
  Sex: Male
  Weight: 100 kg

DRUGS (5)
  1. LYRICA [Suspect]
     Active Substance: PREGABALIN
     Indication: NEUROPATHY PERIPHERAL
     Dosage: 50 MG, ONCE EVERY NIGHT
     Route: 048
     Dates: start: 20161025
  2. METFORMIN HCL [Concomitant]
     Active Substance: METFORMIN HYDROCHLORIDE
     Indication: DIABETES MELLITUS
     Dosage: 1000 MG, 2X/DAY, PILL
     Route: 048
     Dates: start: 20010315
  3. LYRICA [Suspect]
     Active Substance: PREGABALIN
     Indication: DIABETIC NEUROPATHY
     Dosage: UNK UNK, 2X/DAY
  4. LYRICA [Suspect]
     Active Substance: PREGABALIN
     Indication: NEURALGIA
     Dosage: 50 MG, AS NEEDED, BID
     Route: 048
     Dates: start: 20161102
  5. GLIMEPIRIDE. [Concomitant]
     Active Substance: GLIMEPIRIDE
     Indication: DIABETES MELLITUS
     Dosage: 2 MG, 2X/DAY, ONCE IN THE MORNING AND ONCE AT NIGHT
     Route: 048
     Dates: start: 20010315

REACTIONS (6)
  - Intentional product misuse [Unknown]
  - Pre-existing condition improved [Not Recovered/Not Resolved]
  - Drug effect decreased [Recovered/Resolved]
  - Product use issue [Recovered/Resolved]
  - Therapeutic response unexpected [Not Recovered/Not Resolved]
  - Circumstance or information capable of leading to medication error [Unknown]

NARRATIVE: CASE EVENT DATE: 20161025
